FAERS Safety Report 5813285-1 (Version None)
Quarter: 2008Q3

REPORT INFORMATION
  Report Type: 
  Country: None (occurrence: None)
  Receive Date: 20080717
  Receipt Date: 20080707
  Transmission Date: 20090109
  Serious: Yes (Hospitalization)
  Sender: FDA-Public Use
  Company Number: US-JNJFOC-20080702374

PATIENT
  Sex: Female
  Weight: 63.96 kg

DRUGS (28)
  1. DURAGESIC-100 [Suspect]
     Route: 062
  2. DURAGESIC-100 [Suspect]
     Route: 062
  3. DURAGESIC-100 [Suspect]
     Indication: PAIN
     Route: 062
  4. PERCOCET [Concomitant]
     Indication: PAIN
     Dosage: 1 EVERY 3-4 HOURS
     Route: 048
  5. UNSPECIFIED ANALGESIC [Concomitant]
     Indication: PAIN
     Route: 065
  6. PULMICORT-100 [Concomitant]
     Indication: CHRONIC OBSTRUCTIVE PULMONARY DISEASE
     Route: 055
  7. SPIRIVA [Concomitant]
     Indication: CHRONIC OBSTRUCTIVE PULMONARY DISEASE
     Route: 055
  8. FLORADIL [Concomitant]
     Indication: CHRONIC OBSTRUCTIVE PULMONARY DISEASE
     Route: 055
  9. ALBUTEROL [Concomitant]
     Indication: BREAKTHROUGH PAIN
     Route: 055
  10. SINGULAIR [Concomitant]
     Indication: BRONCHITIS
     Route: 048
  11. SINGULAIR [Concomitant]
     Indication: ASTHMA
     Route: 048
  12. NEURONTIN [Concomitant]
     Indication: MIGRAINE
     Route: 048
  13. TOPAMAX [Concomitant]
     Indication: MIGRAINE
     Route: 048
  14. FAMVIR [Concomitant]
     Indication: HERPES ZOSTER
     Route: 065
  15. FAMVIR [Concomitant]
     Indication: ANTIVIRAL PROPHYLAXIS
     Route: 065
  16. DAYPRO [Concomitant]
     Indication: ANTIINFLAMMATORY THERAPY
     Route: 048
  17. ALLEGRA [Concomitant]
     Indication: ANTIALLERGIC THERAPY
     Route: 048
  18. ESTRATEST [Concomitant]
     Indication: OESTROGEN REPLACEMENT THERAPY
     Route: 065
  19. NEXIUM [Concomitant]
     Indication: GASTRIC DISORDER
     Route: 048
  20. AMBIEN [Concomitant]
     Indication: SLEEP DISORDER
     Route: 048
  21. IMMUNE GLOBULIN INTRAVENOUS (HUMAN) [Concomitant]
     Route: 042
  22. STEROIDS [Concomitant]
     Route: 065
  23. FOSAMAX [Concomitant]
     Indication: OSTEOPOROSIS
     Route: 048
  24. PERIOSTAT [Concomitant]
     Indication: TOOTH DISORDER
     Route: 048
  25. COLACE [Concomitant]
     Route: 065
  26. ZANOCET [Concomitant]
     Route: 065
  27. OSCAL [Concomitant]
     Route: 065
  28. UNSPECIFIED VITAMINS [Concomitant]
     Route: 065

REACTIONS (5)
  - DEPRESSION [None]
  - DRUG INEFFECTIVE [None]
  - HEART VALVE INCOMPETENCE [None]
  - INAPPROPRIATE SCHEDULE OF DRUG ADMINISTRATION [None]
  - INTERVERTEBRAL DISC PROTRUSION [None]
